FAERS Safety Report 10926090 (Version 2)
Quarter: 2015Q1

REPORT INFORMATION
  Report Type: Report from Study
  Country: AU (occurrence: AU)
  Receive Date: 20150318
  Receipt Date: 20150325
  Transmission Date: 20150721
  Serious: Yes (Hospitalization, Other)
  Sender: FDA-Public Use
  Company Number: AU-ABBVIE-15P-008-1359530-00

PATIENT
  Age: 52 Year
  Sex: Male

DRUGS (6)
  1. AMLODIPINE [Concomitant]
     Active Substance: AMLODIPINE BESYLATE
     Indication: HYPERTENSION
     Route: 065
  2. ABT-333 [Suspect]
     Active Substance: DASABUVIR
     Indication: HEPATITIS C
     Route: 048
     Dates: start: 20150228
  3. PERINDOPRIL [Concomitant]
     Active Substance: PERINDOPRIL
     Indication: HYPERTENSION
  4. PERINDOPRIL [Concomitant]
     Active Substance: PERINDOPRIL
     Indication: BLOOD PRESSURE
     Route: 048
  5. ABT-450/RITONAVIR/ABT-267 [Suspect]
     Active Substance: OMBITASVIR\PARITAPREVIR\RITONAVIR
     Indication: HEPATITIS C
     Dosage: 150/100/25 MG QD
     Route: 048
     Dates: start: 20150227
  6. RIBAVIRIN. [Suspect]
     Active Substance: RIBAVIRIN
     Indication: HEPATITIS C
     Dosage: DIVIDED DOSES DAILY; TOTAL DAILY DOSE 1200MG
     Route: 048
     Dates: start: 20150228

REACTIONS (7)
  - Neck pain [Recovering/Resolving]
  - Haemoglobin increased [Unknown]
  - Pain [Recovering/Resolving]
  - Musculoskeletal pain [Recovering/Resolving]
  - Chest pain [Recovering/Resolving]
  - Facial pain [Recovering/Resolving]
  - Dyspnoea [Recovering/Resolving]

NARRATIVE: CASE EVENT DATE: 20150306
